FAERS Safety Report 6671890-7 (Version None)
Quarter: 2010Q2

REPORT INFORMATION
  Report Type: 
  Country: None (occurrence: None)
  Receive Date: 20100407
  Receipt Date: 20100326
  Transmission Date: 20101027
  Serious: Yes (Other)
  Sender: FDA-Public Use
  Company Number: US-PFIZER INC-2010040030

PATIENT
  Sex: Female
  Weight: 90.7 kg

DRUGS (3)
  1. LYRICA [Suspect]
     Indication: NEUROPATHY PERIPHERAL
     Dosage: 150 MG, 3X/DAY
     Route: 048
     Dates: start: 20050801
  2. LYRICA [Suspect]
     Indication: CONVULSION
  3. TOPAMAX [Concomitant]
     Indication: CONVULSION
     Dosage: UNK

REACTIONS (4)
  - APPENDIX DISORDER [None]
  - BACK INJURY [None]
  - GRAND MAL CONVULSION [None]
  - WEIGHT INCREASED [None]
